FAERS Safety Report 9994151 (Version 4)
Quarter: 2014Q4

REPORT INFORMATION
  Report Type: Spontaneous
  Country: US (occurrence: US)
  Receive Date: 20140310
  Receipt Date: 20141021
  Transmission Date: 20150529
  Serious: Yes (Death, Hospitalization, Other)
  Sender: FDA-Public Use
  Company Number: US-BAXTER-2014BAX011141

PATIENT
  Sex: Male

DRUGS (1)
  1. DIANEAL LOW CALCIUM PERITONEAL DIALYSIS SOLUTION WITH DEXTROSE [Suspect]
     Active Substance: CALCIUM CHLORIDE\DEXTROSE\MAGNESIUM CHLORIDE\SODIUM CHLORIDE\SODIUM LACTATE
     Indication: CHRONIC KIDNEY DISEASE
     Route: 033
     Dates: start: 2013, end: 201402

REACTIONS (7)
  - Dyspnoea [Unknown]
  - Cyanosis [Unknown]
  - Musculoskeletal pain [Unknown]
  - Dementia Alzheimer^s type [Not Recovered/Not Resolved]
  - Chest pain [Unknown]
  - Death [Fatal]
  - Pallor [Unknown]

NARRATIVE: CASE EVENT DATE: 201402
